FAERS Safety Report 22012111 (Version 1)
Quarter: 2023Q1

REPORT INFORMATION
  Report Type: Spontaneous
  Country: CN (occurrence: CN)
  Receive Date: 20230220
  Receipt Date: 20230220
  Transmission Date: 20230417
  Serious: Yes (Hospitalization, Other)
  Sender: FDA-Public Use
  Company Number: None

PATIENT
  Age: 6 Year
  Sex: Male
  Weight: 23 kg

DRUGS (6)
  1. CYCLOPHOSPHAMIDE [Suspect]
     Active Substance: CYCLOPHOSPHAMIDE
     Indication: Clear cell sarcoma of soft tissue
     Dosage: 0.72 G, ONCE DAILY, DILUTED WITH 250 ML OF (4: 1) GLUCOSE SODIUM CHLORIDE
     Route: 041
     Dates: start: 20230105, end: 20230105
  2. DEXTROSE\SODIUM CHLORIDE [Suspect]
     Active Substance: DEXTROSE\SODIUM CHLORIDE
     Indication: Medication dilution
     Dosage: 250 ML, ONCE DAILY, DOSAGE FORM: INJECTION, USED TO DILUTE 0.72 G CYCLOPHOSPHAMIDE
     Route: 041
     Dates: start: 20230105, end: 20230105
  3. SODIUM CHLORIDE [Suspect]
     Active Substance: SODIUM CHLORIDE
     Indication: Medication dilution
     Dosage: 50 ML, ONCE DAILY, DOSAGE FORM: INJECTION, USED TO DILUTE 1.8 MG VINDESINE SULFATE
     Route: 041
     Dates: start: 20230105, end: 20230105
  4. SODIUM CHLORIDE [Suspect]
     Active Substance: SODIUM CHLORIDE
     Dosage: 250 ML, ONCE DAILY, DOSAGE FORM: INJECTION, USED TO DILUTE 15 MG EPIRUBICIN HYDROCHLORIDE
     Route: 041
     Dates: start: 20230105, end: 20230105
  5. VINDESINE SULFATE [Suspect]
     Active Substance: VINDESINE SULFATE
     Indication: Clear cell sarcoma of soft tissue
     Dosage: 1.8 MG, ONCE DAILY, DILUTED WITH 50 ML OF 0.9 % SODIUM CHLORIDE
     Route: 041
     Dates: start: 20230105, end: 20230105
  6. EPIRUBICIN [Suspect]
     Active Substance: EPIRUBICIN
     Indication: Clear cell sarcoma of soft tissue
     Dosage: 15 MG, ONCE DAILY, DILUTED WITH 250 ML OF 0.9 % SODIUM CHLORIDE
     Route: 041
     Dates: start: 20230105, end: 20230107

REACTIONS (1)
  - Myelosuppression [Recovering/Resolving]

NARRATIVE: CASE EVENT DATE: 20230113
